FAERS Safety Report 8512364-8 (Version None)
Quarter: 2012Q3

REPORT INFORMATION
  Report Type: 
  Country: None (occurrence: None)
  Receive Date: 20120716
  Receipt Date: 20120703
  Transmission Date: 20120928
  Serious: Yes (Other)
  Sender: FDA-Public Use
  Company Number: CH-SANOFI-AVENTIS-2012SA047866

PATIENT

DRUGS (3)
  1. OXALIPLATIN [Suspect]
     Dosage: DAYS 1, 8, 22 AND 29
     Route: 065
  2. THERAPEUTIC RADIOPHARMACEUTICALS [Suspect]
     Dosage: RECEIVED 45-50.5 GY TOTAL DOSE GIVEN IN DAILY FRACTIONS OF 1.8 GY 5 TIMES A WEEK.
     Route: 065
  3. CAPECITABINE [Suspect]
     Route: 065

REACTIONS (1)
  - HYPONATRAEMIA [None]
